FAERS Safety Report 6328976-6 (Version None)
Quarter: 2009Q3

REPORT INFORMATION
  Report Type: 
  Country: None (occurrence: None)
  Receive Date: 20090824
  Receipt Date: 20090824
  Transmission Date: 20100115
  Serious: Yes (Hospitalization, Disabling, Other)
  Sender: FDA-Public Use
  Company Number: None

PATIENT
  Age: 50 Year
  Weight: 95.2554 kg

DRUGS (1)
  1. CIPRO [Suspect]
     Indication: LITHOTRIPSY
     Dosage: 1 TWICE DAILY PO
     Route: 048
     Dates: start: 20090328, end: 20090406

REACTIONS (1)
  - TENDON RUPTURE [None]
